FAERS Safety Report 24126406 (Version 1)
Quarter: 2024Q3

REPORT INFORMATION
  Report Type: Spontaneous
  Country: US (occurrence: US)
  Receive Date: 20240723
  Receipt Date: 20240723
  Transmission Date: 20241017
  Serious: Yes (Life-Threatening, Other)
  Sender: VIFOR
  Company Number: US-Vifor (International) Inc.-VIT-2024-06361

PATIENT
  Age: 43 Year
  Sex: Male
  Weight: 102 kg

DRUGS (3)
  1. MIRCERA [Suspect]
     Active Substance: METHOXY POLYETHYLENE GLYCOL-EPOETIN BETA
     Indication: Nephrogenic anaemia
     Dosage: FIRST DOSE
     Route: 040
     Dates: start: 20240606, end: 20240606
  2. MIRCERA [Suspect]
     Active Substance: METHOXY POLYETHYLENE GLYCOL-EPOETIN BETA
     Dosage: 2ND INCREASED DOSE
     Route: 040
     Dates: start: 20240620, end: 20240620
  3. VENOFER [Suspect]
     Active Substance: IRON SUCROSE
     Indication: Product used for unknown indication
     Route: 042
     Dates: start: 20240604

REACTIONS (3)
  - Drug hypersensitivity [Recovered/Resolved]
  - Lethargy [Recovered/Resolved]
  - Pulse absent [Recovered/Resolved]

NARRATIVE: CASE EVENT DATE: 20240620
